FAERS Safety Report 4424076-0 (Version None)
Quarter: 2004Q3

REPORT INFORMATION
  Report Type: 
  Country: None (occurrence: None)
  Receive Date: 20040806
  Receipt Date: 20040803
  Transmission Date: 20050211
  Serious: Yes (Hospitalization, Other)
  Sender: FDA-Public Use
  Company Number: ITWYE820914JUN04

PATIENT
  Age: 41 Year
  Sex: Female

DRUGS (14)
  1. RAPAMUNE [Suspect]
     Indication: PROPHYLAXIS AGAINST TRANSPLANT REJECTION
     Dosage: SEE IMAGE
     Route: 048
     Dates: start: 20031022, end: 20031022
  2. RAPAMUNE [Suspect]
     Indication: PROPHYLAXIS AGAINST TRANSPLANT REJECTION
     Dosage: SEE IMAGE
     Route: 048
     Dates: start: 20031023, end: 20031109
  3. RAPAMUNE [Suspect]
     Indication: PROPHYLAXIS AGAINST TRANSPLANT REJECTION
     Dosage: SEE IMAGE
     Route: 048
     Dates: start: 20031210, end: 20040612
  4. KLACID (CLARITHROMYCIN,  , 0) [Suspect]
     Indication: BACTERIAL INFECTION
     Dates: start: 20040607, end: 20040610
  5. ZESTRIL [Concomitant]
  6. CARDURA [Concomitant]
  7. TENORMIN [Concomitant]
  8. FERROGRAD (FERROUS SULFATE EXSICCATED) [Concomitant]
  9. PARIET (RABEPRZOLE) [Concomitant]
  10. PANTORC (PANTOPRAZOLE SODIUM) [Concomitant]
  11. AUGMENTIN [Concomitant]
  12. SODIUM BICARBONATE IN PLASTIC CONTAINER [Concomitant]
  13. DETACORTENE (PREDNISONE) [Concomitant]
  14. PROGRAF [Concomitant]

REACTIONS (4)
  - DIARRHOEA [None]
  - NAUSEA [None]
  - RENAL IMPAIRMENT [None]
  - VOMITING [None]
